FAERS Safety Report 7077291-4 (Version None)
Quarter: 2010Q4

REPORT INFORMATION
  Report Type: 
  Country: None (occurrence: None)
  Receive Date: 20101029
  Receipt Date: 20101029
  Transmission Date: 20110411
  Serious: Yes (Hospitalization)
  Sender: FDA-Public Use
  Company Number: None

PATIENT
  Sex: Male
  Weight: 84.6 kg

DRUGS (2)
  1. CARBOPLATIN [Suspect]
     Dosage: 505 MG
  2. ETOPOSIDE [Suspect]
     Dosage: 627 MG

REACTIONS (4)
  - DEHYDRATION [None]
  - HYPOTHYROIDISM [None]
  - INFUSION SITE PAIN [None]
  - NAUSEA [None]
